FAERS Safety Report 23580309 (Version 1)
Quarter: 2024Q1

REPORT INFORMATION
  Report Type: Spontaneous
  Country: HR (occurrence: HR)
  Receive Date: 20240229
  Receipt Date: 20240229
  Transmission Date: 20240409
  Serious: Yes (Hospitalization, Other)
  Sender: FDA-Public Use
  Company Number: HR-SANDOZ-SDZ2023HR047294

PATIENT
  Age: 85 Year
  Sex: Female

DRUGS (1)
  1. ANASTROZOLE [Suspect]
     Active Substance: ANASTROZOLE
     Indication: Breast cancer
     Dosage: UNK
     Route: 065

REACTIONS (4)
  - Burning sensation [Recovering/Resolving]
  - Pain [Recovering/Resolving]
  - Erythema multiforme [Recovering/Resolving]
  - Rash [Recovering/Resolving]
